FAERS Safety Report 16781836 (Version 1)
Quarter: 2019Q3

REPORT INFORMATION
  Report Type: Spontaneous
  Country: US (occurrence: US)
  Receive Date: 20190906
  Receipt Date: 20190906
  Transmission Date: 20191005
  Serious: No
  Sender: FDA-Public Use
  Company Number: US-ASTRAZENECA-2019SF14822

PATIENT
  Age: 12 Year
  Sex: Male

DRUGS (2)
  1. FASENRA [Suspect]
     Active Substance: BENRALIZUMAB
     Dosage: UNKNOWN
     Route: 058
  2. VARICELLA [Concomitant]

REACTIONS (2)
  - Urticaria [Unknown]
  - Drug ineffective [Unknown]
